FAERS Safety Report 9917092 (Version 4)
Quarter: 2014Q2

REPORT INFORMATION
  Report Type: Spontaneous
  Country: JP (occurrence: JP)
  Receive Date: 20140221
  Receipt Date: 20140421
  Transmission Date: 20141212
  Serious: Yes (Death)
  Sender: FDA-Public Use
  Company Number: PHHY2014JP021528

PATIENT
  Age: 89 Year
  Sex: Female

DRUGS (1)
  1. EXELON PATCH [Suspect]
     Indication: DEMENTIA ALZHEIMER^S TYPE
     Dosage: 4.5 MG DAILY (1.9 MG/24 HOURS)
     Route: 062
     Dates: start: 20140131

REACTIONS (7)
  - Marasmus [Fatal]
  - Cardiac arrest [Fatal]
  - Respiratory arrest [Fatal]
  - Blood pressure decreased [Fatal]
  - Pneumonia [Fatal]
  - Pyrexia [Fatal]
  - Urinary tract infection [Fatal]
